FAERS Safety Report 10745325 (Version 1)
Quarter: 2015Q1

REPORT INFORMATION
  Report Type: Spontaneous
  Country: US (occurrence: None)
  Receive Date: 20150126
  Receipt Date: 20150126
  Transmission Date: 20150721
  Serious: Yes (Death)
  Sender: FDA-Public Use
  Company Number: None

PATIENT
  Age: 85 Year
  Sex: Male
  Weight: 55 kg

DRUGS (13)
  1. MEGACE [Concomitant]
     Active Substance: MEGESTROL ACETATE
  2. ERLOTINIB [Suspect]
     Active Substance: ERLOTINIB
     Indication: LUNG CARCINOMA CELL TYPE UNSPECIFIED STAGE IV
     Dosage: 1 PILL
     Route: 048
  3. ASPIRIN. [Concomitant]
     Active Substance: ASPIRIN
  4. VITAMIN B12 [Concomitant]
     Active Substance: CYANOCOBALAMIN
  5. ADVAIR DISKUS [Concomitant]
     Active Substance: FLUTICASONE PROPIONATE\SALMETEROL XINAFOATE
  6. METOPROLOL [Concomitant]
     Active Substance: METOPROLOL
  7. HYDREA [Concomitant]
     Active Substance: HYDROXYUREA
  8. ATORVASTATIN [Concomitant]
     Active Substance: ATORVASTATIN
  9. TYLENOL [Concomitant]
     Active Substance: ACETAMINOPHEN
  10. ALBUTEROL. [Concomitant]
     Active Substance: ALBUTEROL
  11. AZELASTINE [Concomitant]
     Active Substance: AZELASTINE
  12. FLUTICASONE [Concomitant]
     Active Substance: FLUTICASONE\FLUTICASONE PROPIONATE
  13. MONTELUKAST [Concomitant]
     Active Substance: MONTELUKAST SODIUM

REACTIONS (5)
  - Axillary pain [None]
  - Sudden death [None]
  - Respiratory distress [None]
  - Pulmonary embolism [None]
  - Flank pain [None]

NARRATIVE: CASE EVENT DATE: 20150126
